FAERS Safety Report 6030959-0 (Version None)
Quarter: 2009Q1

REPORT INFORMATION
  Report Type: 
  Country: None (occurrence: None)
  Receive Date: 20090106
  Receipt Date: 20081229
  Transmission Date: 20090719
  Serious: Yes (Hospitalization, Disabling, Other)
  Sender: FDA-Public Use
  Company Number: 1000003044

PATIENT
  Age: 52 Year
  Weight: 68 kg

DRUGS (2)
  1. CAMPRAL [Suspect]
     Indication: ALCOHOL ABUSE
     Dosage: 1998 MG (666 MG, 3 IN 1 D), ORAL
     Route: 048
     Dates: start: 20080801, end: 20081101
  2. CITALOPRAM HYDROBROMIDE [Concomitant]

REACTIONS (2)
  - OPTIC NEURITIS [None]
  - VISUAL FIELD DEFECT [None]
